FAERS Safety Report 12300303 (Version 2)
Quarter: 2016Q2

REPORT INFORMATION
  Report Type: Spontaneous
  Country: JP (occurrence: JP)
  Receive Date: 20160425
  Receipt Date: 20160629
  Transmission Date: 20160815
  Serious: Yes (Hospitalization, Disabling, Other)
  Sender: FDA-Public Use
  Company Number: JP-BAUSCH-BL-2016-009444

PATIENT
  Sex: Male
  Weight: 76.09 kg

DRUGS (15)
  1. EYLEA [Suspect]
     Active Substance: AFLIBERCEPT
     Indication: HAEMATOMA
     Route: 047
     Dates: start: 20141210
  2. EYLEA [Suspect]
     Active Substance: AFLIBERCEPT
     Route: 047
     Dates: start: 20151201
  3. EYLEA [Suspect]
     Active Substance: AFLIBERCEPT
     Route: 047
     Dates: start: 20151227
  4. EYLEA [Suspect]
     Active Substance: AFLIBERCEPT
     Route: 047
     Dates: start: 20160305
  5. VISUDYNE [Suspect]
     Active Substance: VERTEPORFIN
     Indication: NEOVASCULAR AGE-RELATED MACULAR DEGENERATION
     Route: 042
     Dates: start: 20151018
  6. EYLEA [Suspect]
     Active Substance: AFLIBERCEPT
     Route: 047
     Dates: start: 20150607
  7. EYLEA [Suspect]
     Active Substance: AFLIBERCEPT
     Route: 047
     Dates: start: 20150117
  8. EYLEA [Suspect]
     Active Substance: AFLIBERCEPT
     Route: 047
     Dates: start: 20160514
  9. EYLEA [Suspect]
     Active Substance: AFLIBERCEPT
     Route: 047
     Dates: start: 20150822
  10. EYLEA [Suspect]
     Active Substance: AFLIBERCEPT
     Route: 047
     Dates: start: 20151017
  11. EYLEA [Suspect]
     Active Substance: AFLIBERCEPT
     Route: 047
     Dates: start: 20151227
  12. SULFUR HEXAFLUORIDE [Concomitant]
     Active Substance: SULFUR HEXAFLUORIDE
     Indication: PRODUCT USED FOR UNKNOWN INDICATION
  13. EYLEA [Suspect]
     Active Substance: AFLIBERCEPT
     Route: 047
     Dates: start: 20150704
  14. EYLEA [Suspect]
     Active Substance: AFLIBERCEPT
     Route: 047
     Dates: start: 20150915
  15. EYLEA [Suspect]
     Active Substance: AFLIBERCEPT
     Route: 047
     Dates: start: 20151110

REACTIONS (3)
  - Retinal haemorrhage [Recovering/Resolving]
  - Retinal pigment epithelial tear [Not Recovered/Not Resolved]
  - Visual acuity reduced [Recovering/Resolving]
